FAERS Safety Report 12677607 (Version 1)
Quarter: 2016Q3

REPORT INFORMATION
  Report Type: Spontaneous
  Country: US (occurrence: US)
  Receive Date: 20160823
  Receipt Date: 20160823
  Transmission Date: 20161109
  Serious: No
  Sender: FDA-Public Use
  Company Number: US-BAYER-2016-156258

PATIENT
  Age: 91 Year
  Sex: Male
  Weight: 64.4 kg

DRUGS (9)
  1. LOTREL [Concomitant]
     Active Substance: AMLODIPINE BESYLATE\BENAZEPRIL HYDROCHLORIDE
  2. GLUCOTROL [Concomitant]
     Active Substance: GLIPIZIDE
  3. FLOMAX (TAMSULOSIN) [Concomitant]
  4. MAGNESIUM CITRATE. [Concomitant]
     Active Substance: MAGNESIUM CITRATE
  5. WARFARIN [Concomitant]
     Active Substance: WARFARIN
  6. MIRALAX [Suspect]
     Active Substance: POLYETHYLENE GLYCOL 3350
     Indication: FREQUENT BOWEL MOVEMENTS
     Dosage: 2 DF, QD
     Route: 048
     Dates: start: 20160727
  7. PRAVASTATIN. [Concomitant]
     Active Substance: PRAVASTATIN
  8. PROSCAR [Concomitant]
     Active Substance: FINASTERIDE
  9. CASODEX [Concomitant]
     Active Substance: BICALUTAMIDE

REACTIONS (2)
  - Product use issue [None]
  - Diarrhoea [None]

NARRATIVE: CASE EVENT DATE: 20160727
